FAERS Safety Report 6897816-9 (Version None)
Quarter: 2010Q3

REPORT INFORMATION
  Report Type: 
  Country: None (occurrence: None)
  Receive Date: 20100802
  Receipt Date: 20070718
  Transmission Date: 20110219
  Serious: Yes (Other)
  Sender: FDA-Public Use
  Company Number: US-PFIZER INC-2007059149

PATIENT
  Sex: Female
  Weight: 68.181 kg

DRUGS (19)
  1. LYRICA [Suspect]
     Indication: OSTEOARTHRITIS
     Dates: start: 20070717, end: 20070717
  2. FENTANYL CITRATE [Concomitant]
  3. NITROGLYCERIN [Concomitant]
  4. METOPROLOL [Concomitant]
  5. DIGOXIN [Concomitant]
  6. TRAMADOL HYDROCHLORIDE [Concomitant]
  7. SIMVASTATIN [Concomitant]
  8. ALLOPURINOL [Concomitant]
  9. TORSEMIDE [Concomitant]
  10. PROTONIX [Concomitant]
  11. LEVOTHYROXINE SODIUM [Concomitant]
  12. MULTI-VITAMINS [Concomitant]
  13. ASCORBIC ACID [Concomitant]
  14. DARVOCET [Concomitant]
  15. VICODIN [Concomitant]
  16. TYLENOL W/ CODEINE NO. 3 [Concomitant]
  17. LOVAZA [Concomitant]
  18. COD-LIVER OIL [Concomitant]
  19. GLUCOSAMINE W/CHONDROITIN SULFATES [Suspect]

REACTIONS (5)
  - DIZZINESS [None]
  - DYSSTASIA [None]
  - FATIGUE [None]
  - NAUSEA [None]
  - SOMNOLENCE [None]
